FAERS Safety Report 13366823 (Version 1)
Quarter: 2017Q1

REPORT INFORMATION
  Report Type: Spontaneous
  Country: US (occurrence: US)
  Receive Date: 20170323
  Receipt Date: 20170323
  Transmission Date: 20170429
  Serious: Yes (Disabling)
  Sender: FDA-Public Use
  Company Number: None

PATIENT
  Age: 59 Year
  Sex: Female
  Weight: 76.5 kg

DRUGS (5)
  1. CYMBALTA [Concomitant]
     Active Substance: DULOXETINE HYDROCHLORIDE
  2. PROBIOTICS [Concomitant]
     Active Substance: PROBIOTICS NOS
  3. CALCIUM [Concomitant]
     Active Substance: CALCIUM
  4. METHYLPHENIDATE HYDROCHLORIDE. [Suspect]
     Active Substance: METHYLPHENIDATE HYDROCHLORIDE
     Indication: ATTENTION DEFICIT/HYPERACTIVITY DISORDER
     Route: 048
     Dates: start: 20161110, end: 20161120
  5. PSYLLIUM [Concomitant]
     Active Substance: PLANTAGO SEED

REACTIONS (3)
  - Product formulation issue [None]
  - Product substitution issue [None]
  - Irritable bowel syndrome [None]

NARRATIVE: CASE EVENT DATE: 20161120
